FAERS Safety Report 24537829 (Version 1)
Quarter: 2024Q4

REPORT INFORMATION
  Report Type: Spontaneous
  Country: NL (occurrence: NL)
  Receive Date: 20241023
  Receipt Date: 20241023
  Transmission Date: 20250115
  Serious: Yes (Other)
  Sender: SANDOZ
  Company Number: NL-NOVPHSZ-PHHY2019NL087973

PATIENT
  Sex: Female

DRUGS (1)
  1. MESALAMINE [Suspect]
     Active Substance: MESALAMINE
     Indication: Colitis
     Dosage: UNK
     Route: 065

REACTIONS (2)
  - Nephrolithiasis [Unknown]
  - Pain [Unknown]
